FAERS Safety Report 22098387 (Version 1)
Quarter: 2023Q1

REPORT INFORMATION
  Report Type: Spontaneous
  Country: LT (occurrence: LT)
  Receive Date: 20230315
  Receipt Date: 20230315
  Transmission Date: 20230418
  Serious: Yes (Other)
  Sender: FDA-Public Use
  Company Number: LT-BAYER-2023A034065

PATIENT
  Age: 59 Year
  Sex: Male

DRUGS (3)
  1. NEXAVAR [Suspect]
     Active Substance: SORAFENIB
     Indication: Hepatocellular carcinoma
     Dosage: 400 MG, BID
     Dates: start: 20190712
  2. STIVARGA [Suspect]
     Active Substance: REGORAFENIB
     Indication: Hepatocellular carcinoma
     Dosage: 160 MG, QD, FOR 3 WEEKS. EVERY 4-WEEK CYCLE
  3. STIVARGA [Suspect]
     Active Substance: REGORAFENIB
     Indication: Hepatocellular carcinoma
     Dosage: 120 MG, QD
     Dates: start: 20200605, end: 20200702

REACTIONS (7)
  - Hepatocellular carcinoma [None]
  - Hepatocellular carcinoma [None]
  - Diarrhoea [None]
  - Asthenia [None]
  - Abdominal pain upper [None]
  - Muscle spasms [None]
  - Drug intolerance [None]

NARRATIVE: CASE EVENT DATE: 20200701
